FAERS Safety Report 8018248-6 (Version None)
Quarter: 2012Q1

REPORT INFORMATION
  Report Type: 
  Country: None (occurrence: None)
  Receive Date: 20120103
  Receipt Date: 20111223
  Transmission Date: 20120608
  Serious: Yes (Hospitalization)
  Sender: FDA-Public Use
  Company Number: US-BAYER-2011-075470

PATIENT
  Age: 27 Year
  Sex: Female

DRUGS (8)
  1. YAZ [Suspect]
     Indication: CONTRACEPTION
     Dosage: UNK
     Dates: start: 20081001, end: 20100101
  2. CALCIUM CARBONATE [Concomitant]
  3. XANAX [Concomitant]
  4. LOESTRIN 1.5/30 [Concomitant]
     Dosage: UNK
     Dates: start: 20090406
  5. NEXIUM [Concomitant]
  6. MULTI-VITAMINS [Concomitant]
     Dosage: UNK
     Dates: start: 20091207
  7. LIDEX [Concomitant]
     Indication: PRURITUS
     Dosage: UNK UNK, BID
     Dates: start: 20091124
  8. IMITREX [Concomitant]

REACTIONS (2)
  - CHOLECYSTITIS CHRONIC [None]
  - GALLBLADDER INJURY [None]
